FAERS Safety Report 9687925 (Version 1)
Quarter: 2013Q4

REPORT INFORMATION
  Report Type: Other
  Country: SG (occurrence: SG)
  Receive Date: 20131114
  Receipt Date: 20131114
  Transmission Date: 20140711
  Serious: Yes (Hospitalization)
  Sender: FDA-Public Use
  Company Number: SG-US-EMD SERONO, INC.-7248721

PATIENT
  Age: 38 Year
  Sex: Female

DRUGS (2)
  1. FOLLITROPIN ALFA [Suspect]
     Indication: OVULATION INDUCTION
  2. CHORIOGONADOTROPIN ALFA [Suspect]
     Indication: LUTEAL PHASE DEFICIENCY

REACTIONS (4)
  - Ovarian hyperstimulation syndrome [Unknown]
  - Cerebrovascular accident [Recovering/Resolving]
  - Ascites [Unknown]
  - Haemoconcentration [Recovered/Resolved]
